FAERS Safety Report 16388841 (Version 1)
Quarter: 2019Q2

REPORT INFORMATION
  Report Type: Spontaneous
  Country: IT (occurrence: IT)
  Receive Date: 20190604
  Receipt Date: 20190604
  Transmission Date: 20190711
  Serious: Yes (Hospitalization, Other)
  Sender: FDA-Public Use
  Company Number: IT-PFIZER INC-2019233899

PATIENT
  Age: 65 Year
  Sex: Female

DRUGS (3)
  1. ZOLOFT [Suspect]
     Active Substance: SERTRALINE HYDROCHLORIDE
     Dosage: 1600 MG, TOTAL
     Route: 048
     Dates: start: 20180322, end: 20180322
  2. FOLINA [FOLIC ACID] [Concomitant]
     Active Substance: FOLIC ACID
  3. ARIPIPRAZOLE. [Concomitant]
     Active Substance: ARIPIPRAZOLE
     Dosage: 15 MG, UNK

REACTIONS (5)
  - Agitation [Recovered/Resolved]
  - Tremor [Recovered/Resolved]
  - Drug abuse [Recovered/Resolved]
  - Tachycardia [Recovered/Resolved]
  - Suicide attempt [Recovered/Resolved]

NARRATIVE: CASE EVENT DATE: 20180322
